FAERS Safety Report 8576572-2 (Version None)
Quarter: 2012Q3

REPORT INFORMATION
  Report Type: 
  Country: None (occurrence: None)
  Receive Date: 20120807
  Receipt Date: 20120725
  Transmission Date: 20120928
  Serious: Yes (Life-Threatening, Hospitalization, Disabling, Other)
  Sender: FDA-Public Use
  Company Number: GB-ROCHE-1092769

PATIENT
  Age: 90 Year
  Sex: Female

DRUGS (6)
  1. CLONAZEPAM [Suspect]
     Indication: ANALGESIC THERAPY
     Route: 048
     Dates: start: 20120630, end: 20120709
  2. OXYCODONE HCL [Suspect]
     Indication: ANALGESIC THERAPY
     Route: 048
     Dates: start: 20120628, end: 20120705
  3. ONDANSETRON [Suspect]
     Indication: NAUSEA
     Route: 048
     Dates: start: 20120628
  4. METOCLOPRAMIDE [Suspect]
     Indication: NAUSEA
     Route: 048
     Dates: start: 20120628, end: 20120710
  5. MORPHINE SULFATE [Suspect]
     Indication: ANALGESIC THERAPY
     Route: 048
     Dates: start: 20120619, end: 20120620
  6. MORPHINE SULFATE [Suspect]
     Route: 048
     Dates: start: 20120628, end: 20120628

REACTIONS (6)
  - BLISTER [None]
  - RASH [None]
  - SKIN EXFOLIATION [None]
  - ERYTHEMA [None]
  - STEVENS-JOHNSON SYNDROME [None]
  - EXCORIATION [None]
